FAERS Safety Report 6455595-3 (Version None)
Quarter: 2009Q4

REPORT INFORMATION
  Report Type: 
  Country: None (occurrence: None)
  Receive Date: 20091125
  Receipt Date: 20090904
  Transmission Date: 20100525
  Serious: No
  Sender: FDA-Public Use
  Company Number: US-ABBOTT-09P-163-0595553-00

PATIENT
  Sex: Male

DRUGS (5)
  1. SIMCOR [Suspect]
     Indication: HIGH DENSITY LIPOPROTEIN DECREASED
  2. NIASPAN [Suspect]
     Indication: HIGH DENSITY LIPOPROTEIN DECREASED
     Dosage: TAKEN AT BEDTIME
  3. ZIAC [Concomitant]
     Indication: DRUG USE FOR UNKNOWN INDICATION
  4. NORVASC [Concomitant]
     Indication: DRUG USE FOR UNKNOWN INDICATION
  5. LOVAZA [Concomitant]
     Indication: DRUG USE FOR UNKNOWN INDICATION

REACTIONS (2)
  - ALOPECIA [None]
  - FLUSHING [None]
